FAERS Safety Report 11542072 (Version 1)
Quarter: 2015Q3

REPORT INFORMATION
  Report Type: Spontaneous
  Country: FR (occurrence: FR)
  Receive Date: 20150923
  Receipt Date: 20150923
  Transmission Date: 20151125
  Serious: Yes (Other)
  Sender: FDA-Public Use
  Company Number: FR-SUNOVION-2014SUN000045

PATIENT

DRUGS (13)
  1. FYCOMPA [Suspect]
     Active Substance: PERAMPANEL
     Dosage: 4 MG, DAILY
     Route: 048
     Dates: start: 20150722
  2. KEPPRA [Concomitant]
     Active Substance: LEVETIRACETAM
     Dosage: DAILY DOSE INCREASED
  3. ZEBINIX [Suspect]
     Active Substance: ESLICARBAZEPINE ACETATE
     Dosage: DOSE PROGRESSIVELY DECREASED
     Route: 048
     Dates: start: 20140725, end: 201408
  4. ZEBINIX [Suspect]
     Active Substance: ESLICARBAZEPINE ACETATE
     Dosage: UNKNOWN
     Route: 048
  5. PERAMPANEL [Suspect]
     Active Substance: PERAMPANEL
     Dosage: 2 MG, QD
     Route: 048
     Dates: end: 20150722
  6. FYCOMPA [Suspect]
     Active Substance: PERAMPANEL
     Dosage: 4 MG, DAILY
     Route: 048
     Dates: start: 201408
  7. KEPPRA [Concomitant]
     Active Substance: LEVETIRACETAM
     Indication: EPILEPSY
     Dosage: DOSE INCREASED
     Dates: start: 2012
  8. ZEBINIX [Suspect]
     Active Substance: ESLICARBAZEPINE ACETATE
     Indication: EPILEPSY
     Dosage: 800 MG, DAILY
     Route: 048
     Dates: end: 20140724
  9. PERAMPANEL [Suspect]
     Active Substance: PERAMPANEL
     Dosage: 4 MG, QD
     Route: 048
     Dates: start: 20150722
  10. FYCOMPA [Suspect]
     Active Substance: PERAMPANEL
     Dosage: 2 MG, DAILY
     Route: 048
     Dates: end: 20150722
  11. PERAMPANEL [Suspect]
     Active Substance: PERAMPANEL
     Indication: EPILEPSY
     Dosage: 2 MG, DAILY
     Route: 048
     Dates: start: 20140725, end: 201408
  12. PERAMPANEL [Suspect]
     Active Substance: PERAMPANEL
     Dosage: 4 MG, DAILY
     Route: 048
     Dates: start: 201408
  13. FYCOMPA [Suspect]
     Active Substance: PERAMPANEL
     Indication: EPILEPSY
     Dosage: 2 MG, DAILY
     Route: 048
     Dates: start: 20140725, end: 201408

REACTIONS (15)
  - Vision blurred [Recovered/Resolved]
  - Pain in extremity [Not Recovered/Not Resolved]
  - Fatigue [Not Recovered/Not Resolved]
  - Depression suicidal [Not Recovered/Not Resolved]
  - Gamma-glutamyltransferase increased [Recovered/Resolved]
  - Diplopia [Recovered/Resolved]
  - Somnolence [Not Recovered/Not Resolved]
  - Mood swings [Not Recovered/Not Resolved]
  - Aspartate aminotransferase increased [Recovered/Resolved]
  - Alanine aminotransferase increased [Recovered/Resolved]
  - Depressed mood [Not Recovered/Not Resolved]
  - Suicidal ideation [Unknown]
  - Seizure [Recovered/Resolved]
  - Dizziness [Recovered/Resolved]
  - Aggression [Not Recovered/Not Resolved]

NARRATIVE: CASE EVENT DATE: 2014
